FAERS Safety Report 9476606 (Version 2)
Quarter: 2013Q3

REPORT INFORMATION
  Report Type: Spontaneous
  Country: AR (occurrence: AR)
  Receive Date: 20130826
  Receipt Date: 20130826
  Transmission Date: 20140515
  Serious: Yes (Hospitalization)
  Sender: FDA-Public Use
  Company Number: AR-CUBIST PHARMACEUTICAL, INC.-2013CBST000674

PATIENT
  Sex: 0

DRUGS (1)
  1. CUBICIN [Suspect]
     Indication: STAPHYLOCOCCAL BACTERAEMIA
     Dosage: 6 MG/KG, QD
     Route: 065

REACTIONS (3)
  - Pyrexia [Recovered/Resolved]
  - Drug ineffective [Unknown]
  - Antimicrobial susceptibility test resistant [Recovered/Resolved]
